FAERS Safety Report 5592611-5 (Version None)
Quarter: 2008Q1

REPORT INFORMATION
  Report Type: 
  Country: None (occurrence: None)
  Receive Date: 20080114
  Receipt Date: 20080102
  Transmission Date: 20080703
  Serious: Yes (Other)
  Sender: FDA-Public Use
  Company Number: AZAUS200700466

PATIENT
  Age: 63 Year
  Sex: Male
  Weight: 117 kg

DRUGS (6)
  1. VIDAZA [Suspect]
     Indication: MYELODYSPLASTIC SYNDROME
     Dosage: 90 MG/M2, DAILY X5, SUBCUTANEOUS
     Route: 058
     Dates: start: 20071204, end: 20071207
  2. AMARYL [Concomitant]
  3. FOLIC ACID [Concomitant]
  4. HUMULIN               (NOVOLIN 20/80) [Concomitant]
  5. SENOKOT [Concomitant]
  6. MEGACE [Concomitant]

REACTIONS (4)
  - CHOLELITHIASIS [None]
  - HEPATITIS [None]
  - IRON OVERLOAD [None]
  - SPLENOMEGALY [None]
